FAERS Safety Report 18547742 (Version 3)
Quarter: 2020Q4

REPORT INFORMATION
  Report Type: Spontaneous
  Country: GB (occurrence: GB)
  Receive Date: 20201125
  Receipt Date: 20201218
  Transmission Date: 20210114
  Serious: Yes (Hospitalization, Other)
  Sender: FDA-Public Use
  Company Number: GB-NEUROCRINE BIOSCIENCES INC.-2020NBI04329

PATIENT
  Age: 80 Year
  Sex: Female

DRUGS (12)
  1. ROTIGOTINE [Concomitant]
     Active Substance: ROTIGOTINE
     Dosage: REDUCED TO 8 MILLIGRAM
     Route: 065
     Dates: start: 2020
  2. L DOPA [Concomitant]
     Active Substance: LEVODOPA
     Indication: PARKINSON^S DISEASE
     Dosage: 100 MILLIGRAM, UNKNOWN
     Dates: start: 202002
  3. ROTIGOTINE [Concomitant]
     Active Substance: ROTIGOTINE
     Dosage: REDUCED TO 10 MILLIGRAM
     Route: 065
     Dates: start: 20200702, end: 20200909
  4. ROPINIROLE [ROPINIROLE HYDROCHLORIDE] [Concomitant]
     Active Substance: ROPINIROLE HYDROCHLORIDE
     Indication: PARKINSON^S DISEASE
     Dosage: 16 MILLIGRAM, UNKNOWN
     Dates: start: 202002
  5. CO-CARELDOPA [Concomitant]
     Active Substance: CARBIDOPA\LEVODOPA
     Route: 048
     Dates: start: 2014
  6. ROTIGOTINE [Concomitant]
     Active Substance: ROTIGOTINE
     Dosage: REDUCED TO 14 MILLIGRAM
     Route: 065
     Dates: start: 2020, end: 2020
  7. CO-CARELDOPA [Concomitant]
     Active Substance: CARBIDOPA\LEVODOPA
     Route: 048
     Dates: start: 2014
  8. FLUDROCORTISONE [Concomitant]
     Active Substance: FLUDROCORTISONE
  9. SINEMET PLUS [Suspect]
     Active Substance: CARBIDOPA\LEVODOPA
     Dosage: DOSE INCREASED OVER TIME, UNKNOWN
     Dates: start: 201810
  10. ONGENTYS [Suspect]
     Active Substance: OPICAPONE
     Indication: PARKINSON^S DISEASE
     Dosage: UNKNOWN
     Route: 065
     Dates: start: 20200514, end: 20200710
  11. SINEMET PLUS [Suspect]
     Active Substance: CARBIDOPA\LEVODOPA
     Indication: PARKINSON^S DISEASE
     Dosage: UNKNOWN
     Route: 065
  12. ROTIGOTINE [Concomitant]
     Active Substance: ROTIGOTINE
     Indication: PARKINSON^S DISEASE
     Route: 065
     Dates: start: 20141010, end: 20200702

REACTIONS (6)
  - Hallucination, visual [Recovered/Resolved]
  - Therapy cessation [Unknown]
  - Persecutory delusion [Recovered/Resolved]
  - Agitation [Recovered/Resolved]
  - Paranoia [Recovered/Resolved]
  - Aggression [Recovered/Resolved]

NARRATIVE: CASE EVENT DATE: 20200622
